FAERS Safety Report 7242146-9 (Version None)
Quarter: 2011Q1

REPORT INFORMATION
  Report Type: 
  Country: None (occurrence: None)
  Receive Date: 20110124
  Receipt Date: 20110119
  Transmission Date: 20110831
  Serious: Yes (Other)
  Sender: FDA-Public Use
  Company Number: CA-PFIZER INC-2009301574

PATIENT
  Age: 54 Year
  Sex: Female

DRUGS (2)
  1. PRISTIQ [Interacting]
     Dosage: 50 MG, 1X/DAY
     Route: 048
     Dates: start: 20091120, end: 20091121
  2. ZELDOX [Suspect]
     Indication: PSYCHOTIC DISORDER
     Dosage: 40 MG, 2X/DAY
     Route: 048
     Dates: start: 20091120, end: 20091121

REACTIONS (11)
  - HEADACHE [None]
  - DRUG INTERACTION [None]
  - TONGUE OEDEMA [None]
  - DYSPNOEA [None]
  - FLUID RETENTION [None]
  - NERVOUSNESS [None]
  - ABASIA [None]
  - NAUSEA [None]
  - FACE OEDEMA [None]
  - HYPERHIDROSIS [None]
  - OEDEMA PERIPHERAL [None]
